FAERS Safety Report 23785344 (Version 3)
Quarter: 2024Q2

REPORT INFORMATION
  Report Type: Spontaneous
  Country: US (occurrence: US)
  Receive Date: 20240425
  Receipt Date: 20240529
  Transmission Date: 20240716
  Serious: Yes (Hospitalization)
  Sender: FDA-Public Use
  Company Number: US-Calliditas-2024CAL00605

PATIENT
  Age: 48 Year
  Sex: Female
  Weight: 105.23 kg

DRUGS (2)
  1. TARPEYO [Suspect]
     Active Substance: BUDESONIDE
     Indication: IgA nephropathy
     Dosage: 16MG (4MG CAPSULES) ONCE DAILY
     Route: 048
     Dates: start: 20240323
  2. VICTOZA [Suspect]
     Active Substance: LIRAGLUTIDE

REACTIONS (7)
  - Hypertensive emergency [Unknown]
  - Epistaxis [Unknown]
  - Muscle spasms [Unknown]
  - Increased appetite [Unknown]
  - Weight increased [Unknown]
  - Energy increased [Unknown]
  - Peripheral swelling [Unknown]

NARRATIVE: CASE EVENT DATE: 20240327
